FAERS Safety Report 8778365 (Version 2)
Quarter: 2015Q2

REPORT INFORMATION
  Report Type: Report from Study
  Country: US (occurrence: US)
  Receive Date: 20120912
  Receipt Date: 20150406
  Transmission Date: 20150821
  Serious: Yes (Other)
  Sender: FDA-Public Use
  Company Number: US-ROCHE-1101528

PATIENT
  Sex: Female

DRUGS (12)
  1. ACTIVASE [Suspect]
     Active Substance: ALTEPLASE
     Indication: ACUTE MYOCARDIAL INFARCTION
     Route: 042
     Dates: start: 19910628
  2. HEPARIN [Concomitant]
     Active Substance: HEPARIN SODIUM
     Dosage: 20000 UNITS IN 1000 CC D5W AT 50 CC
     Route: 065
  3. HEPARIN [Concomitant]
     Active Substance: HEPARIN SODIUM
     Dosage: 50 CC/HOUR
     Route: 041
  4. XYLOCAINE [Concomitant]
     Active Substance: LIDOCAINE HYDROCHLORIDE
     Route: 065
  5. MORPHINE SULFATE. [Concomitant]
     Active Substance: MORPHINE SULFATE
     Route: 065
  6. HEPARIN [Concomitant]
     Active Substance: HEPARIN SODIUM
     Dosage: 5000 UNITS
     Route: 040
     Dates: start: 19910628
  7. LIDOCAINE. [Concomitant]
     Active Substance: LIDOCAINE
     Route: 040
     Dates: start: 19910628
  8. MORPHINE SULFATE. [Concomitant]
     Active Substance: MORPHINE SULFATE
     Route: 042
  9. LASIX [Concomitant]
     Active Substance: FUROSEMIDE
     Route: 042
  10. PHENERGAN [Concomitant]
     Active Substance: PROMETHAZINE HYDROCHLORIDE
     Route: 065
  11. ACTIVASE [Suspect]
     Active Substance: ALTEPLASE
     Route: 042
  12. LIDOCAINE. [Concomitant]
     Active Substance: LIDOCAINE
     Dosage: 1000 CCD5W AT 2 MG
     Route: 065
     Dates: start: 19910628

REACTIONS (6)
  - Hyperhidrosis [Unknown]
  - Somnolence [Unknown]
  - Dry skin [Unknown]
  - Vomiting [Unknown]
  - Feeling cold [Unknown]
  - Pain [Unknown]
